FAERS Safety Report 23168063 (Version 3)
Quarter: 2023Q4

REPORT INFORMATION
  Report Type: Spontaneous
  Country: IL (occurrence: IL)
  Receive Date: 20231109
  Receipt Date: 20231212
  Transmission Date: 20240110
  Serious: No
  Sender: FDA-Public Use
  Company Number: IL-ALXN-202311ISR000132IL

PATIENT
  Age: 25 Year
  Sex: Female

DRUGS (1)
  1. SOLIRIS [Suspect]
     Active Substance: ECULIZUMAB
     Indication: Myasthenia gravis
     Dosage: UNK
     Route: 065
     Dates: start: 20231101, end: 202311

REACTIONS (1)
  - Insurance issue [Unknown]
